FAERS Safety Report 9729959 (Version 1)
Quarter: 2013Q4

REPORT INFORMATION
  Report Type: Spontaneous
  Country: US (occurrence: US)
  Receive Date: 20131204
  Receipt Date: 20131204
  Transmission Date: 20140711
  Serious: No
  Sender: FDA-Public Use
  Company Number: US-009507513-1311USA008129

PATIENT
  Sex: Male

DRUGS (2)
  1. DUOFILM LIQUID [Suspect]
     Indication: SKIN PAPILLOMA
     Dosage: UNK, UNKNOWN
     Route: 061
  2. DUOFILM LIQUID [Suspect]
     Indication: TINEA PEDIS

REACTIONS (2)
  - Skin exfoliation [Unknown]
  - Product quality issue [Unknown]
